FAERS Safety Report 15296402 (Version 1)
Quarter: 2018Q3

REPORT INFORMATION
  Report Type: Spontaneous
  Country: US (occurrence: US)
  Receive Date: 20180807
  Receipt Date: 20180807
  Transmission Date: 20181010
  Serious: Yes (Life-Threatening, Disabling, Other)
  Sender: FDA-Public Use
  Company Number: None

PATIENT
  Age: 61 Year
  Sex: Female
  Weight: 61.23 kg

DRUGS (5)
  1. CEPHALEXIN. [Suspect]
     Active Substance: CEPHALEXIN
     Dosage: ?          QUANTITY:1 DF DOSAGE FORM;?
     Dates: start: 20171128, end: 20171206
  2. MOMETASONE [Concomitant]
     Active Substance: MOMETASONE
  3. BETAMETHASONE. [Concomitant]
     Active Substance: BETAMETHASONE
  4. HYDROCORTISONE. [Concomitant]
     Active Substance: HYDROCORTISONE
  5. MUPIROCIN. [Concomitant]
     Active Substance: MUPIROCIN

REACTIONS (7)
  - Haemorrhage [None]
  - Rash pustular [None]
  - Deformity [None]
  - Hypersensitivity [None]
  - Wound secretion [None]
  - Pain [None]
  - Skin ulcer [None]

NARRATIVE: CASE EVENT DATE: 20171202
